FAERS Safety Report 12739823 (Version 1)
Quarter: 2016Q3

REPORT INFORMATION
  Report Type: Spontaneous
  Country: US (occurrence: US)
  Receive Date: 20160913
  Receipt Date: 20160913
  Transmission Date: 20161109
  Serious: Yes (Death)
  Sender: FDA-Public Use
  Company Number: US-CELGENEUS-USA-2016090668

PATIENT
  Age: 83 Year
  Sex: Female

DRUGS (1)
  1. REVLIMID [Suspect]
     Active Substance: LENALIDOMIDE
     Indication: FAMILIAL POLYCYTHAEMIA
     Dosage: 15 MILLIGRAM
     Route: 048
     Dates: start: 20141125

REACTIONS (1)
  - Death [Fatal]

NARRATIVE: CASE EVENT DATE: 20160829
